FAERS Safety Report 23956790 (Version 2)
Quarter: 2025Q3

REPORT INFORMATION
  Report Type: Spontaneous
  Country: EU (occurrence: EU)
  Receive Date: 20240610
  Receipt Date: 20250930
  Transmission Date: 20251020
  Serious: Yes (Other)
  Sender: NOVARTIS
  Company Number: EU-002147023-NVSC2024RO118230

PATIENT
  Age: 42 Year
  Sex: Male

DRUGS (5)
  1. GLIVEC [Suspect]
     Active Substance: IMATINIB MESYLATE
     Indication: Philadelphia positive chronic myeloid leukaemia
     Dosage: 400 MG, QD
     Route: 065
     Dates: start: 200611, end: 200809
  2. GLIVEC [Suspect]
     Active Substance: IMATINIB MESYLATE
     Dosage: 600 MG, QD
     Route: 065
     Dates: start: 200810, end: 200910
  3. TASIGNA [Suspect]
     Active Substance: NILOTINIB
     Indication: Philadelphia positive chronic myeloid leukaemia
     Dosage: 800 MG, QD
     Route: 065
     Dates: start: 202109, end: 202306
  4. TASIGNA [Suspect]
     Active Substance: NILOTINIB
     Route: 065
     Dates: start: 202311
  5. SCEMBLIX [Suspect]
     Active Substance: ASCIMINIB HYDROCHLORIDE
     Indication: Philadelphia positive chronic myeloid leukaemia
     Dosage: 40 MG, BID
     Route: 065
     Dates: start: 202403

REACTIONS (6)
  - Pleurisy [Recovering/Resolving]
  - Pleural effusion [Not Recovered/Not Resolved]
  - Interstitial lung disease [Unknown]
  - Cytogenetic response [Unknown]
  - Loss of therapeutic response [Unknown]
  - Treatment failure [Unknown]

NARRATIVE: CASE EVENT DATE: 20210901
